FAERS Safety Report 9467141 (Version 2)
Quarter: 2013Q3

REPORT INFORMATION
  Report Type: Spontaneous
  Country: JP (occurrence: JP)
  Receive Date: 20130820
  Receipt Date: 20130903
  Transmission Date: 20140515
  Serious: Yes (Other)
  Sender: FDA-Public Use
  Company Number: PHHY2013JP086713

PATIENT
  Sex: Male

DRUGS (1)
  1. DOCETAXEL [Suspect]
     Route: 042

REACTIONS (1)
  - Vasculitis [Recovered/Resolved]
